FAERS Safety Report 5799829-7 (Version None)
Quarter: 2008Q3

REPORT INFORMATION
  Report Type: 
  Country: None (occurrence: None)
  Receive Date: 20080702
  Receipt Date: 20080702
  Transmission Date: 20090109
  Serious: Yes (Other)
  Sender: FDA-Public Use
  Company Number: None

PATIENT
  Age: 85 Year
  Sex: Female

DRUGS (1)
  1. DIGITEK 0.125MG BERTEK [Suspect]
     Dosage: 1 TABLET BY MOUTH DAILY
     Route: 048

REACTIONS (2)
  - CHEST PAIN [None]
  - FEELING ABNORMAL [None]
